FAERS Safety Report 5177954-1 (Version None)
Quarter: 2006Q4

REPORT INFORMATION
  Report Type: 
  Country: None (occurrence: None)
  Receive Date: 20061218
  Receipt Date: 20060801
  Transmission Date: 20070319
  Serious: No
  Sender: FDA-Public Use
  Company Number: US-AMGEN-KDL188704

PATIENT
  Sex: Female

DRUGS (2)
  1. ENBREL [Suspect]
     Indication: ANKYLOSING SPONDYLITIS
     Route: 058
     Dates: start: 20030901
  2. SULFASALAZINE [Concomitant]
     Dates: start: 20020101

REACTIONS (4)
  - CYSTITIS [None]
  - INJECTION SITE IRRITATION [None]
  - INJECTION SITE REACTION [None]
  - KIDNEY INFECTION [None]
